FAERS Safety Report 6023367-X (Version None)
Quarter: 2008Q4

REPORT INFORMATION
  Report Type: 
  Country: None (occurrence: None)
  Receive Date: 20081222
  Receipt Date: 20081116
  Transmission Date: 20090506
  Serious: No
  Sender: FDA-Public Use
  Company Number: ALL1-2008-03341

PATIENT
  Age: 7 Year
  Sex: Male
  Weight: 41.3 kg

DRUGS (3)
  1. VYVANSE [Suspect]
     Indication: ATTENTION DEFICIT/HYPERACTIVITY DISORDER
     Dosage: 30 MG, 1X/DAY:QD, ORAL ; 50 MG, 1X/DAY:QD, ORAL
     Route: 048
     Dates: start: 20081001, end: 20081115
  2. VYVANSE [Suspect]
     Indication: ATTENTION DEFICIT/HYPERACTIVITY DISORDER
     Dosage: 30 MG, 1X/DAY:QD, ORAL ; 50 MG, 1X/DAY:QD, ORAL
     Route: 048
     Dates: start: 20081116
  3. PREDNISONE [Concomitant]

REACTIONS (3)
  - ERYTHEMA [None]
  - PRURITUS [None]
  - RASH [None]
